FAERS Safety Report 14560156 (Version 2)
Quarter: 2018Q2

REPORT INFORMATION
  Report Type: Report from Study
  Country: US (occurrence: US)
  Receive Date: 20180222
  Receipt Date: 20180410
  Transmission Date: 20180711
  Serious: Yes (Other)
  Sender: FDA-Public Use
  Company Number: US-ROCHE-2062111

PATIENT
  Sex: Female

DRUGS (2)
  1. OCREVUS [Suspect]
     Active Substance: OCRELIZUMAB
     Indication: PRIMARY PROGRESSIVE MULTIPLE SCLEROSIS
     Dosage: ONGOING
     Route: 042
     Dates: start: 20170929
  2. OCREVUS [Suspect]
     Active Substance: OCRELIZUMAB
     Indication: RELAPSING-REMITTING MULTIPLE SCLEROSIS
     Dosage: ONGOING
     Route: 042
     Dates: start: 20170927

REACTIONS (10)
  - Haemorrhage [Unknown]
  - Fall [Unknown]
  - Spinal fracture [Unknown]
  - Back pain [Not Recovered/Not Resolved]
  - Pain [Unknown]
  - Fall [Unknown]
  - Multiple fractures [Unknown]
  - Fall [Unknown]
  - Pain [Not Recovered/Not Resolved]
  - Rib fracture [Unknown]

NARRATIVE: CASE EVENT DATE: 20170929
